FAERS Safety Report 8906872 (Version 1)
Quarter: 2012Q4

REPORT INFORMATION
  Report Type: 
  Country: US (occurrence: US)
  Receive Date: 20121114
  Receipt Date: 20121114
  Transmission Date: 20130627
  Serious: Yes (Hospitalization)
  Sender: FDA-Public Use
  Company Number: US-BAYER-2012-117769

PATIENT
  Age: 41 Year
  Sex: Female
  Weight: 69 kg

DRUGS (6)
  1. YASMIN [Suspect]
     Indication: MENOPAUSAL SYMPTOMS
  2. YASMIN [Suspect]
     Indication: DEPRESSION
  3. EFFEXOR XR [Concomitant]
     Dosage: 37.5-150 mg daily
     Dates: start: 20030602
  4. LEXAPRO [Concomitant]
     Dosage: 10 mg, daily
     Dates: start: 20030602
  5. DIFLUCAN [Concomitant]
     Dosage: 150 mg, UNK
     Dates: start: 20040501
  6. AMBIEN [Concomitant]
     Dosage: 10 mg, UNK
     Dates: start: 20040611

REACTIONS (3)
  - Pulmonary embolism [Recovered/Resolved]
  - Cholecystitis acute [Recovered/Resolved]
  - Off label use [None]
